FAERS Safety Report 20101234 (Version 1)
Quarter: 2021Q4

REPORT INFORMATION
  Report Type: Spontaneous
  Country: US (occurrence: US)
  Receive Date: 20211123
  Receipt Date: 20211123
  Transmission Date: 20220303
  Serious: Yes (Hospitalization)
  Sender: FDA-Public Use
  Company Number: US-JNJFOC-20211131284

PATIENT
  Age: 44 Year
  Sex: Female

DRUGS (2)
  1. TYLENOL [Suspect]
     Active Substance: ACETAMINOPHEN
     Indication: Accidental overdose
     Dosage: ACETAMINOPHEN AT A DOSE OF 1000 MG/DAY AND A TOTAL DOSE OF 14000 MG OVER 2 DAYS
     Route: 048
     Dates: start: 19991211, end: 19991213
  2. VITAMIN C [Concomitant]
     Active Substance: ASCORBIC ACID
     Indication: Product used for unknown indication
     Route: 065

REACTIONS (4)
  - Acute hepatic failure [Unknown]
  - Blood creatinine increased [Unknown]
  - Pleural effusion [Unknown]
  - Accidental overdose [Unknown]
